FAERS Safety Report 10696103 (Version 2)
Quarter: 2015Q1

REPORT INFORMATION
  Report Type: Spontaneous
  Country: US (occurrence: US)
  Receive Date: 20150107
  Receipt Date: 20150205
  Transmission Date: 20150721
  Serious: No
  Sender: FDA-Public Use
  Company Number: US-PFIZER INC-2015002090

PATIENT
  Age: 58 Year
  Sex: Male
  Weight: 67.6 kg

DRUGS (51)
  1. ATIVAN [Concomitant]
     Active Substance: LORAZEPAM
     Dosage: 0.5 MG, 4X/DAY (PRN)
     Route: 048
  2. BENADRYL [Concomitant]
     Active Substance: DIPHENHYDRAMINE HYDROCHLORIDE
     Dosage: 25 MG, 4X/DAY (PRN)
     Route: 048
  3. COLACE [Concomitant]
     Active Substance: DOCUSATE SODIUM
     Dosage: 100 MG, 2X/DAY
     Route: 048
  4. HYDROCORTISONE. [Concomitant]
     Active Substance: HYDROCORTISONE
     Dosage: 0.5 %, 2X/DAY (1 APP, PRN)
     Route: 061
  5. LIDOCAINE. [Concomitant]
     Active Substance: LIDOCAINE
     Dosage: 2 %, (TOPICAL GEL WITH APPLICATOR. 1 APP, ONCE, PRN)
     Route: 061
  6. SIMETHICONE [Concomitant]
     Active Substance: DIMETHICONE\SILICON DIOXIDE\SIMETHICONE
     Dosage: 80 MG, UNK (Q4HR, PRN)
     Route: 048
  7. ADVIL [Concomitant]
     Active Substance: IBUPROFEN
     Dosage: 400 MG, 2X/DAY
     Route: 048
  8. VFEND [Suspect]
     Active Substance: VORICONAZOLE
     Dosage: 200 MG, 2X/DAY
     Route: 048
  9. ACETAMINOPHEN. [Concomitant]
     Active Substance: ACETAMINOPHEN
     Dosage: UNK, EVERY 4 HRS (PRN)
     Route: 054
  10. ALTEPLASE [Concomitant]
     Active Substance: ALTEPLASE
     Dosage: 2 MG/ML (INTRACATHETER, ONCE, PRN)
  11. AMBIEN [Concomitant]
     Active Substance: ZOLPIDEM TARTRATE
     Dosage: 5 MG, 1X/DAY (AT BEDTIME, AS NEEDED)
     Route: 048
  12. EMLA [Concomitant]
     Active Substance: LIDOCAINE\PRILOCAINE
     Dosage: 2.5%-2.5%, 1 APP, ONCE, PRN
     Route: 061
  13. HEPARIN LOCK FLUSH [Concomitant]
     Active Substance: HEPARIN SODIUM
     Dosage: 10 IU, 2X/DAY (1 ML, IV PUSH)
     Route: 042
  14. HYDROCODONE BITARTRATE AND ACETAMINOPHEN [Concomitant]
     Active Substance: ACETAMINOPHEN\HYDROCODONE BITARTRATE
     Dosage: 5MG-325MG, Q3HR, PRN
     Route: 048
  15. MIRALAX [Concomitant]
     Active Substance: POLYETHYLENE GLYCOL 3350
     Dosage: 17 G, DAILY (1 PACKET)
     Route: 048
  16. LIDOCAINE. [Concomitant]
     Active Substance: LIDOCAINE
     Dosage: 5 %, 1X/DAY (TOPICAL FILM, 1 PATCHES, TRANSDERMAL, BEDTIME)
     Route: 061
  17. VANCOMYCIN HCL [Suspect]
     Active Substance: VANCOMYCIN HYDROCHLORIDE
     Indication: ACUTE MYELOID LEUKAEMIA
     Dosage: UNK
     Route: 042
  18. IMODIUM A-D [Concomitant]
     Active Substance: LOPERAMIDE HYDROCHLORIDE
     Dosage: 2 MG, EVERY 4 HRS (PRN)
     Route: 048
  19. K-PHOS NEUTRAL [Concomitant]
     Active Substance: POTASSIUM PHOSPHATE\SODIUM PHOSPHATE
     Dosage: TIDWM
     Route: 048
  20. NORMAL SALINE FLUSH [Concomitant]
     Active Substance: SODIUM CHLORIDE
     Dosage: 10 ML, 2X/DAY (IV PUSH)
     Route: 042
  21. ZOFRAN [Concomitant]
     Active Substance: ONDANSETRON HYDROCHLORIDE
     Dosage: 4 MG, 4X/DAY (2ML, IV PUSH, PRN)
     Route: 042
  22. COMBIVENT [Concomitant]
     Active Substance: ALBUTEROL SULFATE\IPRATROPIUM BROMIDE
     Dosage: Q2HR, SCHEDULED, PRN
     Route: 055
  23. MAALOX ANTACID [Concomitant]
     Active Substance: ALUMINUM HYDROXIDE\DIMETHICONE\MAGNESIUM HYDROXIDE
     Dosage: 30 ML, 4X/DAY (PRN)
     Route: 048
  24. NORMAL SALINE FLUSH [Concomitant]
     Active Substance: SODIUM CHLORIDE
     Dosage: 10 ML, UNK (IV PUSH, Q1HR, PRN)
     Route: 042
  25. PROCHLORPERAZINE. [Concomitant]
     Active Substance: PROCHLORPERAZINE
     Dosage: 10 MG, 4X/DAY (2ML, IV PUSH,Q6HR, PRN)
     Route: 042
  26. REGLAN [Concomitant]
     Active Substance: METOCLOPRAMIDE HYDROCHLORIDE
     Dosage: 10 MG, 4X/DAY (2 ML, IV PUSH, Q6HR, PRN)
     Route: 042
  27. CHLORASEPTIC SORE THROAT [Concomitant]
     Active Substance: PHENOL
     Dosage: 1.4 %, UNK (1 SPRAY, TOPICAL, Q1HR, PRN)
     Route: 061
  28. DULCOLAX [Concomitant]
     Active Substance: BISACODYL OR DOCUSATE SODIUM
     Dosage: 5 MG, DAILY (PRN)
  29. HEPARIN LOCK FLUSH [Concomitant]
     Active Substance: HEPARIN SODIUM
     Dosage: 10 IU, UNK (1ML, IV PUSH, Q1HR, PRN)
     Route: 042
  30. HYDROMORPHONE [Concomitant]
     Active Substance: HYDROMORPHONE
     Dosage: 0.5 MG, (IV PUSH, Q2HR, PRN)
     Route: 042
  31. LANTUS [Concomitant]
     Active Substance: INSULIN GLARGINE
     Dosage: 14 IU, 1X/DAY (0.14ML, BEDTIME)
     Route: 058
  32. MS CONTIN [Concomitant]
     Active Substance: MORPHINE SULFATE
     Dosage: 15 MG, 2X/DAY
     Route: 048
  33. OPIUM [Concomitant]
     Active Substance: OPIUM
     Dosage: 10 %, (OPIUM TINCTURE), (ORAL TINCTURE, 6MG, 0.6ML, QID, PRN)
     Route: 048
  34. VANCOMYCIN HCL [Suspect]
     Active Substance: VANCOMYCIN HYDROCHLORIDE
     Indication: CENTRAL NERVOUS SYSTEM INFECTION
  35. MERREM [Concomitant]
     Active Substance: MEROPENEM
     Dosage: UNK
  36. SODIUM CHLORIDE. [Concomitant]
     Active Substance: SODIUM CHLORIDE
     Dosage: UNK
  37. MILK OF MAGNESIA [Concomitant]
     Active Substance: MAGNESIUM HYDROXIDE
     Dosage: 2400 MG, DAILY (30ML, PRN)
     Route: 048
  38. NITROGLYCERIN. [Concomitant]
     Active Substance: NITROGLYCERIN
     Dosage: 0.4 MG, UNK (Q5MIN, PRN)
  39. OMEPRAZOLE. [Concomitant]
     Active Substance: OMEPRAZOLE
     Dosage: 20 MG, 1X/DAY (BEFORE BREAKFAST)
     Route: 048
  40. PREPARATION H NOS [Concomitant]
     Active Substance: COCOA BUTTER\PETROLATUM\PHENYLEPHRINE HYDROCHLORIDE\PHENYLEPHRINE HYDROCHLORIDE OR MINERAL OIL
     Dosage: UNK, 3X/DAY
     Route: 054
  41. SENOKOT [Concomitant]
     Active Substance: SENNOSIDES
     Dosage: 17.2 MG, DAILY (2 TABS, PRN)
     Route: 048
  42. SOLU-CORTEF [Concomitant]
     Active Substance: HYDROCORTISONE SODIUM SUCCINATE
     Dosage: 100 MG, 4X/DAY (2ML, IV PUSH, PRN)
     Route: 042
  43. NORMAL SALINE FLUSH [Concomitant]
     Active Substance: SODIUM CHLORIDE
     Dosage: 0.65 %, (NASAL SPRAY, 2 SPRAYS, Q1HR, PRN)
     Route: 045
  44. VFEND [Suspect]
     Active Substance: VORICONAZOLE
     Indication: ASPERGILLUS INFECTION
     Dosage: 300 MG, 2X/DAY (6 TABS)
     Route: 048
  45. ACYCLOVIR. [Concomitant]
     Active Substance: ACYCLOVIR
     Dosage: 400 MG, 2X/DAY
     Route: 048
  46. INSULIN LISPRO HUMALOG [Concomitant]
     Dosage: AS INDICATED, PRN
     Route: 058
  47. MIRALAX [Concomitant]
     Active Substance: POLYETHYLENE GLYCOL 3350
     Dosage: 17 G, DAILY (1 PACKET, PRN)
     Route: 048
  48. ACETAMINOPHEN. [Concomitant]
     Active Substance: ACETAMINOPHEN
     Dosage: 1000 MG, EVERY 4 HRS (2 TABS, PRN)
     Route: 048
  49. HYDROXYZINE HYDROCHLORIDE. [Concomitant]
     Active Substance: HYDROXYZINE HYDROCHLORIDE
     Dosage: 25 MG, 4X/DAY (PRN)
     Route: 048
  50. IMODIUM A-D [Concomitant]
     Active Substance: LOPERAMIDE HYDROCHLORIDE
     Dosage: 4 MG, (ONCE, PRN)
     Route: 048
  51. ZOFRAN [Concomitant]
     Active Substance: ONDANSETRON HYDROCHLORIDE
     Dosage: 4 MG, 4X/DAY (1 TABS, PRN)
     Route: 048

REACTIONS (1)
  - White blood cell count decreased [Unknown]
